FAERS Safety Report 4889819-0 (Version None)
Quarter: 2006Q1

REPORT INFORMATION
  Report Type: 
  Country: None (occurrence: None)
  Receive Date: 20060124
  Receipt Date: 20060113
  Transmission Date: 20060701
  Serious: Yes (Death, Hospitalization, Other)
  Sender: FDA-Public Use
  Company Number: US-MERCK-0601USA01927

PATIENT
  Age: 67 Year
  Sex: Male
  Weight: 64 kg

DRUGS (2)
  1. VIOXX [Suspect]
     Indication: ARTHRITIS
     Route: 048
     Dates: start: 20020101
  2. VIOXX [Suspect]
     Indication: BACK PAIN
     Route: 048
     Dates: start: 20020101

REACTIONS (14)
  - ARTERIOSCLEROSIS CORONARY ARTERY [None]
  - BACK PAIN [None]
  - CHEST PAIN [None]
  - CHRONIC OBSTRUCTIVE PULMONARY DISEASE [None]
  - DEPRESSION [None]
  - DIABETES MELLITUS [None]
  - DYSPNOEA [None]
  - HEART RATE DECREASED [None]
  - HEART RATE IRREGULAR [None]
  - MYOCARDIAL INFARCTION [None]
  - PAIN [None]
  - RENAL FAILURE [None]
  - RESPIRATORY FAILURE [None]
  - URINARY TRACT INFECTION [None]
